FAERS Safety Report 4682698-6 (Version None)
Quarter: 2005Q2

REPORT INFORMATION
  Report Type: 
  Country: None (occurrence: None)
  Receive Date: 20050606
  Receipt Date: 20050527
  Transmission Date: 20051028
  Serious: Yes (Other)
  Sender: FDA-Public Use
  Company Number: 200514575US

PATIENT
  Sex: Female

DRUGS (1)
  1. NASACORT AQ [Suspect]
     Dosage: DOSE: UNK

REACTIONS (3)
  - AMNESIA [None]
  - DISORIENTATION [None]
  - LOSS OF CONSCIOUSNESS [None]
